FAERS Safety Report 5086027-8 (Version None)
Quarter: 2006Q3

REPORT INFORMATION
  Report Type: 
  Country: None (occurrence: None)
  Receive Date: 20060817
  Receipt Date: 20060801
  Transmission Date: 20061208
  Serious: Yes (Life-Threatening, Hospitalization)
  Sender: FDA-Public Use
  Company Number: 227455

PATIENT
  Age: 58 Year
  Sex: Female
  Weight: 72 kg

DRUGS (6)
  1. HERCEPTIN [Suspect]
     Indication: BREAST CANCER
     Dosage: 8 MG/KG, INTRAVENOUS; 6 MG/KG, INTRAVENOUS
     Route: 042
     Dates: start: 20060427
  2. HERCEPTIN [Suspect]
     Indication: BREAST CANCER
     Dosage: 8 MG/KG, INTRAVENOUS; 6 MG/KG, INTRAVENOUS
     Route: 042
     Dates: start: 20060519
  3. L-THYROXINE (LEVOTHYROXINE SODIUM) [Concomitant]
  4. CLARITHROMYCIN [Concomitant]
  5. METOPROLOL TARTRATE [Concomitant]
  6. ANASTROZOLE [Concomitant]

REACTIONS (11)
  - ACUTE RESPIRATORY FAILURE [None]
  - CARDIAC FAILURE [None]
  - CARDIOGENIC SHOCK [None]
  - CONDITION AGGRAVATED [None]
  - HAEMODIALYSIS [None]
  - HEPATIC FAILURE [None]
  - HYPERTENSION [None]
  - PLEURAL EFFUSION [None]
  - RENAL FAILURE ACUTE [None]
  - SKIN REACTION [None]
  - VENTRICULAR DYSFUNCTION [None]
